FAERS Safety Report 5877682-0 (Version None)
Quarter: 2008Q3

REPORT INFORMATION
  Report Type: 
  Country: None (occurrence: None)
  Receive Date: 20080911
  Receipt Date: 20080429
  Transmission Date: 20090109
  Serious: No
  Sender: FDA-Public Use
  Company Number: US-BAYER-200821410NA

PATIENT
  Sex: Female

DRUGS (1)
  1. CIPRO [Suspect]
     Indication: CYSTITIS
     Dosage: TOTAL DAILY DOSE: 500 MG  UNIT DOSE: 500 MG
     Route: 048
     Dates: start: 20080428, end: 20080428

REACTIONS (3)
  - DIZZINESS [None]
  - FEELING ABNORMAL [None]
  - NASAL CONGESTION [None]
